FAERS Safety Report 10713881 (Version 1)
Quarter: 2015Q1

REPORT INFORMATION
  Report Type: Spontaneous
  Country: AU (occurrence: AU)
  Receive Date: 20150115
  Receipt Date: 20150115
  Transmission Date: 20150721
  Serious: Yes (Other)
  Sender: FDA-Public Use
  Company Number: AU-ASTRAZENECA-2015SE01989

PATIENT
  Age: 67 Year
  Sex: Male

DRUGS (9)
  1. ENDONE [Suspect]
     Active Substance: OXYCODONE HYDROCHLORIDE
     Indication: CANCER PAIN
     Dosage: 5 MG, TWO TO THREE TABLETS EVERY FOUR TO SIX HOURS
     Route: 048
     Dates: start: 20140415
  2. FENTANYL. [Concomitant]
     Active Substance: FENTANYL
  3. MAXOLON [Concomitant]
     Active Substance: METOCLOPRAMIDE HYDROCHLORIDE
  4. COSUDEX [Concomitant]
     Active Substance: BICALUTAMIDE
  5. FLUVASTATIN [Concomitant]
     Active Substance: FLUVASTATIN SODIUM
  6. ZOLADEX [Suspect]
     Active Substance: GOSERELIN ACETATE
     Route: 058
  7. RADIOTHERAPY [Suspect]
     Active Substance: RADIATION THERAPY
     Route: 065
  8. DIABEX [Concomitant]
     Active Substance: METFORMIN HYDROCHLORIDE
  9. KEFLEX [Concomitant]
     Active Substance: CEPHALEXIN

REACTIONS (6)
  - Ear discomfort [Recovering/Resolving]
  - Trismus [Recovering/Resolving]
  - Hypoaesthesia [Recovering/Resolving]
  - Bone cancer [Unknown]
  - Lip swelling [Recovering/Resolving]
  - Cancer pain [Unknown]
